FAERS Safety Report 20317345 (Version 2)
Quarter: 2022Q1

REPORT INFORMATION
  Report Type: Spontaneous
  Country: FR (occurrence: FR)
  Receive Date: 20220110
  Receipt Date: 20220118
  Transmission Date: 20220423
  Serious: Yes (Hospitalization, Other)
  Sender: FDA-Public Use
  Company Number: None

PATIENT
  Age: 27 Year
  Sex: Male

DRUGS (4)
  1. TRAMADOL [Suspect]
     Active Substance: TRAMADOL
     Indication: Product used for unknown indication
     Dosage: 800 TO 1000 MG / DAY
     Route: 048
     Dates: start: 2020
  2. SKENAN [Suspect]
     Active Substance: MORPHINE SULFATE
     Indication: Product used for unknown indication
     Dosage: 100 TO 200 MG / DAY (START DATE JUL-2021)
     Route: 048
  3. COCAINE [Concomitant]
     Active Substance: COCAINE
     Dosage: UNK (1 TO 2 G)
  4. CANNABIS SATIVA SUBSP. INDICA TOP [Concomitant]
     Active Substance: CANNABIS SATIVA SUBSP. INDICA TOP
     Dosage: UNK, QD (2 JOINTS DAILY)

REACTIONS (4)
  - Drug withdrawal syndrome [Unknown]
  - Drug dependence [Unknown]
  - Intentional product misuse [Recovering/Resolving]
  - Drug abuse [Recovering/Resolving]

NARRATIVE: CASE EVENT DATE: 20200101
